FAERS Safety Report 7459589-0 (Version None)
Quarter: 2011Q2

REPORT INFORMATION
  Report Type: 
  Country: None (occurrence: None)
  Receive Date: 20110504
  Receipt Date: 20110504
  Transmission Date: 20111010
  Serious: No
  Sender: FDA-Public Use
  Company Number: None

PATIENT
  Sex: Female

DRUGS (1)
  1. SIMVASTATIN [Suspect]
     Dosage: 10MG DAILY PO
     Route: 048
     Dates: start: 20110401, end: 20110426

REACTIONS (1)
  - BLOOD CREATINE PHOSPHOKINASE INCREASED [None]
